FAERS Safety Report 21113354 (Version 1)
Quarter: 2022Q3

REPORT INFORMATION
  Report Type: Spontaneous
  Country: US (occurrence: None)
  Receive Date: 20220721
  Receipt Date: 20220721
  Transmission Date: 20221027
  Serious: No
  Sender: FDA-Public Use
  Company Number: None

PATIENT
  Age: 76 Year
  Sex: Male
  Weight: 99 kg

DRUGS (1)
  1. TIOTROPIUM [Suspect]
     Active Substance: TIOTROPIUM
     Indication: Chronic obstructive pulmonary disease
     Dosage: 2 PUFFS EVERY DAY INHALE?
     Route: 055
     Dates: start: 20220408, end: 20220422

REACTIONS (9)
  - Dizziness [None]
  - Diarrhoea [None]
  - Nausea [None]
  - Vomiting [None]
  - Dyspnoea [None]
  - Wheezing [None]
  - Chest discomfort [None]
  - Abdominal pain upper [None]
  - Therapy cessation [None]

NARRATIVE: CASE EVENT DATE: 20220422
